FAERS Safety Report 9474081 (Version 2)
Quarter: 2013Q3

REPORT INFORMATION
  Report Type: Spontaneous
  Country: ES (occurrence: ES)
  Receive Date: 20130823
  Receipt Date: 20130905
  Transmission Date: 20140515
  Serious: Yes (Other)
  Sender: FDA-Public Use
  Company Number: ES-TEVA-427545ISR

PATIENT
  Age: 17 Year
  Sex: Female
  Weight: 39 kg

DRUGS (2)
  1. RISPERIDONE [Suspect]
     Indication: CONDUCT DISORDER
     Dosage: .5 MILLIGRAM DAILY;
     Route: 065
  2. OLANZAPINE [Suspect]
     Indication: CONDUCT DISORDER
     Dosage: 5 MILLIGRAM DAILY;
     Route: 065

REACTIONS (1)
  - Oculogyric crisis [Recovering/Resolving]
